FAERS Safety Report 11696539 (Version 3)
Quarter: 2018Q1

REPORT INFORMATION
  Report Type: Spontaneous
  Country: US (occurrence: US)
  Receive Date: 20151104
  Receipt Date: 20180209
  Transmission Date: 20180508
  Serious: Yes (Death, Life-Threatening, Other)
  Sender: FDA-Public Use
  Company Number: US-PFIZER INC-2015364930

PATIENT
  Age: 61 Year
  Sex: Male

DRUGS (1)
  1. THROMBIN-JMI [Suspect]
     Active Substance: THROMBIN
     Indication: VASCULAR PSEUDOANEURYSM
     Dosage: 0.9 ML, UNK
     Route: 061

REACTIONS (5)
  - Hypotension [Unknown]
  - Dyspnoea [Unknown]
  - Anaphylactic reaction [Fatal]
  - Pulseless electrical activity [Unknown]
  - Paraesthesia [Unknown]
